FAERS Safety Report 21495859 (Version 2)
Quarter: 2022Q4

REPORT INFORMATION
  Report Type: Report from Study
  Country: US (occurrence: US)
  Receive Date: 20221022
  Receipt Date: 20221217
  Transmission Date: 20230113
  Serious: No
  Sender: FDA-Public Use
  Company Number: US-ABBVIE-4173365

PATIENT
  Age: 69 Year
  Sex: Female

DRUGS (2)
  1. HUMIRA [Suspect]
     Active Substance: ADALIMUMAB
     Indication: Psoriatic arthropathy
     Dosage: EVENT ONSET DATE FOR TOOTH INFECTION AND UPSET STOMACH-2022?CESSATION DATE FOR ANXIETY-2022
     Route: 058
     Dates: start: 20220711
  2. HUMIRA [Suspect]
     Active Substance: ADALIMUMAB
     Indication: Psoriasis

REACTIONS (5)
  - Dry skin [Recovering/Resolving]
  - Abdominal discomfort [Recovering/Resolving]
  - Tooth infection [Recovering/Resolving]
  - Pruritus [Recovering/Resolving]
  - Anxiety [Recovered/Resolved]

NARRATIVE: CASE EVENT DATE: 20221012
